FAERS Safety Report 6448552-4 (Version None)
Quarter: 2009Q4

REPORT INFORMATION
  Report Type: 
  Country: None (occurrence: None)
  Receive Date: 20091120
  Receipt Date: 20091112
  Transmission Date: 20100525
  Serious: Yes (Other)
  Sender: FDA-Public Use
  Company Number: US-PFIZER INC-2009297176

PATIENT
  Sex: Female

DRUGS (2)
  1. NORVASC [Suspect]
  2. INSULIN [Concomitant]

REACTIONS (5)
  - DECREASED ACTIVITY [None]
  - FEMUR FRACTURE [None]
  - GAIT DISTURBANCE [None]
  - LOWER LIMB FRACTURE [None]
  - OEDEMA PERIPHERAL [None]
